FAERS Safety Report 4444480-4 (Version None)
Quarter: 2004Q3

REPORT INFORMATION
  Report Type: 
  Country: None (occurrence: None)
  Receive Date: 20040902
  Receipt Date: 20040820
  Transmission Date: 20050211
  Serious: Yes (Disabling)
  Sender: FDA-Public Use
  Company Number: 2004050963

PATIENT

DRUGS (2)
  1. GEODON [Suspect]
     Indication: PARANOIA
     Dosage: 80 MG (40 MG, 2 IN 1 D)
     Dates: start: 20030830
  2. ALPRAZOLAM [Concomitant]

REACTIONS (1)
  - TARDIVE DYSKINESIA [None]
